FAERS Safety Report 9185971 (Version 5)
Quarter: 2013Q3

REPORT INFORMATION
  Report Type: Spontaneous
  Country: US (occurrence: US)
  Receive Date: 20130325
  Receipt Date: 20130703
  Transmission Date: 20140515
  Serious: Yes (Hospitalization, Other)
  Sender: FDA-Public Use
  Company Number: US-PFIZER INC-2013090753

PATIENT
  Age: 19 Year
  Sex: Female

DRUGS (5)
  1. TAPAZOLE [Suspect]
     Indication: BASEDOW^S DISEASE
     Dosage: 10 MG, 3X/DAY
     Route: 048
     Dates: start: 201212, end: 201302
  2. TAPAZOLE [Suspect]
     Indication: HYPERTHYROIDISM
     Dosage: 40 MG, 1X/DAY
     Route: 048
     Dates: start: 201302, end: 20130313
  3. METOPROLOL TARTRATE [Concomitant]
     Indication: TACHYCARDIA
     Dosage: 50 MG, 2X/DAY (BID)
     Route: 048
     Dates: start: 20130226
  4. LORTAB ELIXIR [Concomitant]
     Indication: PAIN
     Dosage: 7.5 MG, AS NEEDED (Q 4-6)
     Route: 048
  5. ASPIRIN [Concomitant]
     Dosage: 81 MG, 1X/DAY (DAILY)

REACTIONS (7)
  - Leukopenia [Unknown]
  - Febrile neutropenia [Unknown]
  - Neutropenia [Unknown]
  - Agranulocytosis [Recovered/Resolved]
  - Pharyngitis streptococcal [Recovered/Resolved]
  - Skin infection [Recovered/Resolved]
  - Drug ineffective [Unknown]
